FAERS Safety Report 22176137 (Version 2)
Quarter: 2025Q2

REPORT INFORMATION
  Report Type: Report from Study
  Country: AR (occurrence: AR)
  Receive Date: 20230405
  Receipt Date: 20250618
  Transmission Date: 20250717
  Serious: No
  Sender: NOVARTIS
  Company Number: AR-002147023-NVSC2023AR031972

PATIENT
  Age: 55 Year
  Sex: Female

DRUGS (1)
  1. KISQALI [Suspect]
     Active Substance: RIBOCICLIB SUCCINATE
     Indication: Breast cancer metastatic
     Dosage: 600 MG, QD
     Route: 048
     Dates: start: 20211004

REACTIONS (9)
  - Neoplasm [Unknown]
  - Oropharyngeal discomfort [Unknown]
  - Laryngitis [Unknown]
  - Cough [Unknown]
  - Discomfort [Unknown]
  - Hypoaesthesia [Unknown]
  - Muscle spasms [Unknown]
  - Aphthous ulcer [Unknown]
  - Fatigue [Unknown]

NARRATIVE: CASE EVENT DATE: 20221001
